FAERS Safety Report 11688998 (Version 1)
Quarter: 2015Q4

REPORT INFORMATION
  Report Type: Spontaneous
  Country: US (occurrence: None)
  Receive Date: 20151030
  Receipt Date: 20151030
  Transmission Date: 20160304
  Serious: Yes (Other)
  Sender: FDA-Public Use
  Company Number: None

PATIENT
  Age: 52 Year
  Sex: Female
  Weight: 66.68 kg

DRUGS (1)
  1. VIIBRYD [Suspect]
     Active Substance: VILAZODONE HYDROCHLORIDE
     Indication: DEPRESSION
     Route: 048
     Dates: start: 20151001, end: 20151029

REACTIONS (13)
  - Terminal insomnia [None]
  - Crying [None]
  - Peripheral swelling [None]
  - Panic attack [None]
  - Blood pressure increased [None]
  - Anxiety [None]
  - Flushing [None]
  - Abdominal distension [None]
  - Arthralgia [None]
  - Restlessness [None]
  - Dizziness [None]
  - Agitation [None]
  - Exercise tolerance decreased [None]

NARRATIVE: CASE EVENT DATE: 20151029
